FAERS Safety Report 4356098-2 (Version None)
Quarter: 2004Q2

REPORT INFORMATION
  Report Type: 
  Country: None (occurrence: None)
  Receive Date: 20040511
  Receipt Date: 20040507
  Transmission Date: 20050107
  Serious: Yes (Other)
  Sender: FDA-Public Use
  Company Number: US-GLAXOSMITHKLINE-A0509997A

PATIENT
  Age: 59 Year
  Sex: Female

DRUGS (3)
  1. IMITREX [Suspect]
     Indication: MIGRAINE
     Dosage: 50MG VARIABLE DOSE
     Route: 048
  2. ESTRADIOL PATCH [Concomitant]
     Route: 061
  3. PROGESTERONE [Concomitant]

REACTIONS (2)
  - RETINAL DISORDER [None]
  - RETINAL TEAR [None]
